FAERS Safety Report 25769485 (Version 1)
Quarter: 2025Q3

REPORT INFORMATION
  Report Type: Spontaneous
  Country: US (occurrence: US)
  Receive Date: 20250906
  Receipt Date: 20250906
  Transmission Date: 20251020
  Serious: Yes (Other)
  Sender: AMGEN
  Company Number: US-AMGEN-USASP2025173728

PATIENT
  Age: 62 Year
  Sex: Female

DRUGS (13)
  1. BLINATUMOMAB [Suspect]
     Active Substance: BLINATUMOMAB
     Indication: B-cell type acute leukaemia
     Route: 065
  2. CYCLOPHOSPHAMIDE\CYTARABINE\DEXAMETHASONE\DOXORUBICIN\METHOTREXATE\VIN [Concomitant]
     Active Substance: CYCLOPHOSPHAMIDE\CYTARABINE\DEXAMETHASONE\DOXORUBICIN\METHOTREXATE\VINCRISTINE
  3. FLUCONAZOLE [Concomitant]
     Active Substance: FLUCONAZOLE
  4. ISAVUCONAZOLE [Concomitant]
     Active Substance: ISAVUCONAZOLE
     Dosage: 372 MILLIGRAM, QD
  5. POSACONAZOLE [Concomitant]
     Active Substance: POSACONAZOLE
  6. AMPHOTERICIN B [Concomitant]
     Active Substance: AMPHOTERICIN B
  7. DAUNORUBICIN [Concomitant]
     Active Substance: DAUNORUBICIN
  8. CYCLOPHOSPHAMIDE [Concomitant]
     Active Substance: CYCLOPHOSPHAMIDE
  9. PEGASPARGASE [Concomitant]
     Active Substance: PEGASPARGASE
  10. VINCRISTINE [Concomitant]
     Active Substance: VINCRISTINE
  11. METHOTREXATE [Concomitant]
     Active Substance: METHOTREXATE
  12. CYTARABINE [Concomitant]
     Active Substance: CYTARABINE
  13. HYDROCORTISONE [Concomitant]
     Active Substance: HYDROCORTISONE

REACTIONS (2)
  - Acute graft versus host disease oral [Unknown]
  - Acute graft versus host disease in skin [Unknown]
